FAERS Safety Report 24538425 (Version 5)
Quarter: 2025Q3

REPORT INFORMATION
  Report Type: Report from Study
  Country: CA (occurrence: CA)
  Receive Date: 20241023
  Receipt Date: 20250718
  Transmission Date: 20251021
  Serious: Yes (Hospitalization)
  Sender: APOTEX
  Company Number: CA-APOTEX-2024AP012177

PATIENT
  Sex: Male

DRUGS (4)
  1. LENALIDOMIDE [Suspect]
     Active Substance: LENALIDOMIDE
     Indication: Plasma cell myeloma
     Dosage: 25 MILLIGRAM, QD (TAKE 1 CAPSULE DAILY FOR 21 DAYS THEN 14 DAYS OFF)
     Route: 048
     Dates: start: 20240905
  2. LENALIDOMIDE [Suspect]
     Active Substance: LENALIDOMIDE
     Indication: Light chain analysis increased
     Dosage: 10 MILLIGRAM, QD (TAKE 1 CAPSULE DAILY FOR 21 DAYS THEN 14 DAYS OFF)
     Route: 048
     Dates: end: 20241128
  3. LENALIDOMIDE [Suspect]
     Active Substance: LENALIDOMIDE
     Dosage: 10 MILLIGRAM, QD (TAKE 1 CAPSULE DAILY FOR 21 DAYS THEN 14 DAYS OFF)
     Route: 048
     Dates: end: 202502
  4. CYCLOPHOSPHAMIDE\BORTEZOMIB\DEXAMETHASONE [Concomitant]
     Active Substance: CYCLOPHOSPHAMIDE\BORTEZOMIB\DEXAMETHASONE
     Indication: Plasma cell myeloma
     Route: 065

REACTIONS (2)
  - Hospitalisation [Unknown]
  - Off label use [Unknown]

NARRATIVE: CASE EVENT DATE: 20240101
